FAERS Safety Report 8934763 (Version 2)
Quarter: 2013Q1

REPORT INFORMATION
  Report Type: Report from Study
  Country: US (occurrence: US)
  Receive Date: 20121129
  Receipt Date: 20130128
  Transmission Date: 20140127
  Serious: Yes (Other)
  Sender: FDA-Public Use
  Company Number: US-SANOFI-AVENTIS-2012SA086804

PATIENT
  Age: 29 Year
  Sex: Female

DRUGS (13)
  1. DOCETAXEL [Suspect]
     Indication: HER-2 POSITIVE BREAST CANCER
     Dosage: FORM- VIALS?ROUTE- TRANSPLACENTAL, IV NOS
     Dates: start: 20090528
  2. DOCETAXEL [Suspect]
     Indication: HER-2 POSITIVE BREAST CANCER
     Dosage: FORM- VIALS?FORM- VIALS?ROUTE- TRANSPLACENTAL, IV NOS
     Dates: start: 20090806
  3. TRASTUZUMAB [Suspect]
     Indication: HER-2 POSITIVE BREAST CANCER
     Dosage: FORM- VIALS?ROUTE- INTRAVENOUS ?ROUTE- TRANSPLACENTAL
     Dates: start: 20090528
  4. BEVACIZUMAB [Suspect]
     Indication: HER-2 POSITIVE BREAST CANCER
     Dosage: FORM- VIALS?ROUTE- INTRAVEMNOUS, TRANSPLACENTAL
     Dates: start: 20090528
  5. CARBOPLATIN [Suspect]
     Indication: HER-2 POSITIVE BREAST CANCER
     Dosage: FORM- VIALS INTRAVENOUS?FORM- VIALS INTRAVENOUS, TRANSPLACENTAL
     Dates: start: 20090528
  6. CARBOPLATIN [Suspect]
     Indication: HER-2 POSITIVE BREAST CANCER
     Dosage: DOSE LEVEKL- 5 AUC?FORM- VIALS INTRAVENOUS, TRANSPLACENTAL
     Dates: start: 20090806
  7. PHENERGAN [Concomitant]
  8. ZOFRAN [Concomitant]
     Dates: start: 20090719
  9. ESOMEPRAZOLE MAGNESIUM [Concomitant]
     Dates: start: 20090528
  10. MIRALAX [Concomitant]
     Dosage: DOSE; TDD:3000 (30 CC)
     Dates: start: 20090719, end: 20090724
  11. TYLENOL [Concomitant]
     Dates: start: 20090719, end: 20090724
  12. CANNABIS SATIVA SUBSP. INDICA TOP [Concomitant]
  13. MILK OF MAGNESIA [Concomitant]
     Dates: start: 20090719, end: 20090724

REACTIONS (1)
  - Abortion induced [Unknown]
